FAERS Safety Report 4584844-1 (Version None)
Quarter: 2005Q1

REPORT INFORMATION
  Report Type: 
  Country: None (occurrence: None)
  Receive Date: 20050214
  Receipt Date: 20050202
  Transmission Date: 20050727
  Serious: Yes (Other)
  Sender: FDA-Public Use
  Company Number: 430001N05USA

PATIENT
  Sex: Male
  Weight: 71.8 kg

DRUGS (6)
  1. NOVANTRONE [Suspect]
     Indication: MULTIPLE SCLEROSIS
     Dosage: 1 IN 3 MONTHS
     Dates: start: 20020218, end: 20040203
  2. BACLOFEN [Concomitant]
  3. AMANTADINE [Concomitant]
  4. ALENDRONATE SODIUM [Concomitant]
  5. CLONAZEPAM [Concomitant]
  6. SILDENAFIL CITRATE [Concomitant]

REACTIONS (1)
  - EJECTION FRACTION DECREASED [None]
